FAERS Safety Report 5467351-3 (Version None)
Quarter: 2007Q3

REPORT INFORMATION
  Report Type: 
  Country: None (occurrence: None)
  Receive Date: 20070925
  Receipt Date: 20070913
  Transmission Date: 20080115
  Serious: Yes (Other)
  Sender: FDA-Public Use
  Company Number: JP-PFIZER INC-2007076689

PATIENT
  Sex: Female

DRUGS (6)
  1. EPIRUBICIN HYDROCHLORIDE [Suspect]
     Indication: BREAST CANCER
     Route: 042
  2. ANTIFLATULENTS [Concomitant]
  3. ANTIEMETICS AND ANTINAUSEANTS [Concomitant]
  4. OTHER ANTIDIARRHOEALS [Concomitant]
  5. ALL OTHER THERAPEUTIC PRODUCTS [Concomitant]
  6. VARIOUS ALIMENTARY TRACT + METABOLISM PRODUCT [Concomitant]

REACTIONS (5)
  - ALOPECIA [None]
  - ANOREXIA [None]
  - BLOOD PRESSURE INCREASED [None]
  - CONSTIPATION [None]
  - MOOD ALTERED [None]
